FAERS Safety Report 8179512-3 (Version None)
Quarter: 2012Q1

REPORT INFORMATION
  Report Type: 
  Country: None (occurrence: None)
  Receive Date: 20120229
  Receipt Date: 20120221
  Transmission Date: 20120608
  Serious: Yes (Other)
  Sender: FDA-Public Use
  Company Number: 130289

PATIENT
  Sex: Male

DRUGS (1)
  1. MITOMYCIN [Suspect]
     Dosage: 40MG, INTRAVASCULARY INTO THE BLADDER
     Dates: start: 20120215

REACTIONS (2)
  - MEDICATION ERROR [None]
  - EXPIRED DRUG ADMINISTERED [None]
